FAERS Safety Report 7749607-4 (Version None)
Quarter: 2011Q3

REPORT INFORMATION
  Report Type: 
  Country: None (occurrence: None)
  Receive Date: 20110914
  Receipt Date: 20110902
  Transmission Date: 20111222
  Serious: Yes (Hospitalization, Other)
  Sender: FDA-Public Use
  Company Number: US-BAYER-2011-054821

PATIENT
  Age: 24 Year
  Sex: Female
  Weight: 68.027 kg

DRUGS (4)
  1. DROSPIRENONE AND ETHINYL ESTRADIOL [Suspect]
     Indication: ORAL CONTRACEPTION
     Dosage: UNK
     Route: 048
     Dates: start: 20080801, end: 20091226
  2. FOLIC ACID [Concomitant]
     Dosage: 800 MCG/24HR, QD
     Route: 048
  3. MULTI-VITAMIN [Concomitant]
     Dosage: UNK
     Route: 048
  4. YASMIN [Suspect]
     Indication: ORAL CONTRACEPTION
     Dosage: UNK
     Route: 048
     Dates: start: 20080201, end: 20080801

REACTIONS (4)
  - COGNITIVE DISORDER [None]
  - INJURY [None]
  - CEREBRAL ARTERY THROMBOSIS [None]
  - CEREBRAL INFARCTION [None]
